FAERS Safety Report 6968159-X (Version None)
Quarter: 2010Q3

REPORT INFORMATION
  Report Type: 
  Country: None (occurrence: None)
  Receive Date: 20100907
  Receipt Date: 20100827
  Transmission Date: 20110219
  Serious: Yes (Other)
  Sender: FDA-Public Use
  Company Number: NO-JNJFOC-20090900969

PATIENT
  Sex: Female

DRUGS (7)
  1. REMICADE [Suspect]
     Indication: CROHN'S DISEASE
     Route: 042
  2. REMICADE [Suspect]
     Route: 042
  3. REMICADE [Suspect]
     Route: 042
  4. REMICADE [Suspect]
     Route: 042
  5. REMICADE [Suspect]
     Dosage: STOPPED AFTER 2 DOSES
     Route: 042
  6. HUMIRA [Suspect]
     Indication: CROHN'S DISEASE
     Route: 058
  7. HUMIRA [Suspect]
     Route: 058

REACTIONS (5)
  - ALOPECIA [None]
  - DRUG EXPOSURE DURING PREGNANCY [None]
  - DYSPNOEA [None]
  - HYPERSENSITIVITY [None]
  - THERAPEUTIC RESPONSE DECREASED [None]
